FAERS Safety Report 6723373-3 (Version None)
Quarter: 2010Q2

REPORT INFORMATION
  Report Type: 
  Country: None (occurrence: None)
  Receive Date: 20100511
  Receipt Date: 20100429
  Transmission Date: 20101027
  Serious: Yes (Hospitalization)
  Sender: FDA-Public Use
  Company Number: 1000013707

PATIENT
  Sex: Female

DRUGS (3)
  1. ESCITALOPRAM [Suspect]
     Dosage: 5 MG (5 MG, 1 IN 1 D), ORAL; 10 MG (10MG, 1 IN 1D), ORAL
     Route: 048
     Dates: start: 20100301, end: 20100304
  2. ESCITALOPRAM [Suspect]
     Dosage: 5 MG (5 MG, 1 IN 1 D), ORAL; 10 MG (10MG, 1 IN 1D), ORAL
     Route: 048
     Dates: start: 20100305
  3. ALPRAZOLAM [Concomitant]

REACTIONS (1)
  - LOSS OF CONSCIOUSNESS [None]
